FAERS Safety Report 6724279-6 (Version None)
Quarter: 2010Q2

REPORT INFORMATION
  Report Type: 
  Country: None (occurrence: None)
  Receive Date: 20100513
  Receipt Date: 20100507
  Transmission Date: 20101027
  Serious: Yes (Other)
  Sender: FDA-Public Use
  Company Number: US-TEVA-234131USA

PATIENT
  Sex: Male

DRUGS (1)
  1. FLUCONAZOLE 50 MG, 100 MG, 150 MG + 200 MG TABLETS [Suspect]
     Indication: RASH
     Route: 048
     Dates: start: 20100420

REACTIONS (3)
  - EYE OEDEMA [None]
  - NAUSEA [None]
  - RETINAL DISORDER [None]
